FAERS Safety Report 5491420-5 (Version None)
Quarter: 2007Q4

REPORT INFORMATION
  Report Type: 
  Country: None (occurrence: None)
  Receive Date: 20071018
  Receipt Date: 20071004
  Transmission Date: 20080405
  Serious: Yes (Death)
  Sender: FDA-Public Use
  Company Number: POMP-11218

PATIENT
  Age: 69 Year
  Sex: Male
  Weight: 64 kg

DRUGS (1)
  1. MYOZYME [Suspect]
     Indication: GLYCOGEN STORAGE DISEASE TYPE II
     Dosage: 1380 MG Q2WKS IV
     Route: 042
     Dates: start: 20060718, end: 20070921

REACTIONS (3)
  - CARDIO-RESPIRATORY ARREST [None]
  - HERPES ZOSTER [None]
  - OEDEMA PERIPHERAL [None]
